FAERS Safety Report 21091140 (Version 1)
Quarter: 2022Q3

REPORT INFORMATION
  Report Type: Spontaneous
  Country: US (occurrence: US)
  Receive Date: 20220716
  Receipt Date: 20220716
  Transmission Date: 20221027
  Serious: Yes (Other)
  Sender: FDA-Public Use
  Company Number: US-GRUNENTHAL-2022-105921

PATIENT
  Age: 60 Year
  Sex: Female
  Weight: 95.24 kg

DRUGS (2)
  1. TAPENTADOL HYDROCHLORIDE [Suspect]
     Active Substance: TAPENTADOL HYDROCHLORIDE
     Indication: Back pain
     Dosage: 100 MILLIGRAM, EVERY 8 HRS
     Route: 048
     Dates: start: 20220617, end: 2022
  2. TRAMADOL HYDROCHLORIDE [Suspect]
     Active Substance: TRAMADOL HYDROCHLORIDE
     Indication: Product used for unknown indication
     Dosage: UNK
     Route: 065

REACTIONS (10)
  - Hallucination, visual [Recovered/Resolved]
  - Gait disturbance [Recovered/Resolved]
  - Hypotonia [Recovered/Resolved]
  - Feeling abnormal [Recovered/Resolved]
  - Ear discomfort [Recovered/Resolved]
  - Miosis [Recovered/Resolved]
  - Headache [Recovered/Resolved]
  - Dysarthria [Recovered/Resolved]
  - Nausea [Recovered/Resolved]
  - Drug ineffective [Unknown]

NARRATIVE: CASE EVENT DATE: 20220101
